FAERS Safety Report 14942384 (Version 1)
Quarter: 2018Q2

REPORT INFORMATION
  Report Type: Spontaneous
  Country: FR (occurrence: FR)
  Receive Date: 20180528
  Receipt Date: 20180528
  Transmission Date: 20180711
  Serious: Yes (Other)
  Sender: FDA-Public Use
  Company Number: FR-MERCK KGAA-2048518

PATIENT
  Age: 87 Year
  Sex: Female

DRUGS (1)
  1. NOVOTHYROX [Suspect]
     Active Substance: LEVOTHYROXINE SODIUM
     Indication: PRODUCT USED FOR UNKNOWN INDICATION

REACTIONS (22)
  - Gait disturbance [None]
  - Hiccups [None]
  - Arthralgia [None]
  - Anxiety [None]
  - Loss of personal independence in daily activities [None]
  - Social avoidant behaviour [None]
  - Personal relationship issue [None]
  - Thyroxine free decreased [None]
  - Impaired work ability [None]
  - Gamma-glutamyltransferase increased [None]
  - Hypoglycaemia [None]
  - Sneezing [None]
  - Vertigo [None]
  - Headache [None]
  - High density lipoprotein increased [None]
  - Aphasia [None]
  - Deafness [None]
  - Visual impairment [None]
  - Malaise [None]
  - Irritability [None]
  - Hypoaesthesia [None]
  - Corrective lens user [None]

NARRATIVE: CASE EVENT DATE: 2017
